FAERS Safety Report 7711379-7 (Version None)
Quarter: 2011Q3

REPORT INFORMATION
  Report Type: 
  Country: None (occurrence: None)
  Receive Date: 20110810
  Receipt Date: 20110808
  Transmission Date: 20111222
  Serious: Yes (Other)
  Sender: FDA-Public Use
  Company Number: 2011027980

PATIENT
  Age: 53 Year
  Sex: Male

DRUGS (12)
  1. VIAGRA [Concomitant]
  2. PRIVIGEN [Suspect]
  3. SOLU-MEDROL [Concomitant]
  4. PREDNISONE [Concomitant]
  5. PRIVIGEN [Suspect]
  6. PRIVIGEN [Suspect]
  7. AMITRIPTYLINE HYDROCHLORIDE [Concomitant]
  8. ZOPICLONE (ZOPICLONE) [Concomitant]
  9. LASIX [Concomitant]
  10. PRIVIGEN [Suspect]
     Indication: DERMATOMYOSITIS
     Dosage: 90 G QD,180 G OVER TWO DAYS, INTRAVENOUS
     Route: 042
     Dates: start: 20110318, end: 20110319
  11. NOVAMOXIN (AMOXICILLIN TRIHYDRATE) [Concomitant]
  12. PREVACID [Concomitant]

REACTIONS (2)
  - INFUSION SITE HAEMORRHAGE [None]
  - ANAEMIA [None]
